FAERS Safety Report 19606172 (Version 1)
Quarter: 2021Q3

REPORT INFORMATION
  Report Type: Spontaneous
  Country: US (occurrence: US)
  Receive Date: 20210725
  Receipt Date: 20210725
  Transmission Date: 20211014
  Serious: No
  Sender: FDA-Public Use
  Company Number: US-ORGANON-O2107USA001499

PATIENT
  Age: 19 Year
  Sex: Female

DRUGS (1)
  1. NEXPLANON [Suspect]
     Active Substance: ETONOGESTREL
     Indication: CONTRACEPTION
     Dosage: 68 MILLIGRAM, LEFT UPPER ARM
     Route: 059
     Dates: start: 20200717, end: 20201001

REACTIONS (2)
  - Implant site vesicles [Recovered/Resolved]
  - Implant site erythema [Recovered/Resolved]

NARRATIVE: CASE EVENT DATE: 20201001
